FAERS Safety Report 9444095 (Version 1)
Quarter: 2013Q3

REPORT INFORMATION
  Report Type: Spontaneous
  Country: US (occurrence: None)
  Receive Date: 20130806
  Receipt Date: 20130806
  Transmission Date: 20140515
  Serious: Yes (Other)
  Sender: FDA-Public Use
  Company Number: None

PATIENT
  Age: 70 Year
  Sex: Female
  Weight: 44.45 kg

DRUGS (1)
  1. SIMVASTATIN [Suspect]
     Indication: BLOOD CHOLESTEROL
     Dosage: 10 MG 1 TABLET EVERY EVENING 30-PILLS 1 DAILY BY MOUTH ?AFTER I GOT A SHOT AND THEN WENT TO URGENT CARE
     Route: 048
     Dates: start: 20130711, end: 20130716

REACTIONS (3)
  - Pruritus generalised [None]
  - Rash [None]
  - Erythema [None]
